FAERS Safety Report 10799258 (Version 1)
Quarter: 2015Q1

REPORT INFORMATION
  Report Type: Report from Study
  Country: US (occurrence: US)
  Receive Date: 20150216
  Receipt Date: 20150216
  Transmission Date: 20150721
  Serious: No
  Sender: FDA-Public Use
  Company Number: US-ABBVIE-14K-163-1244929-00

PATIENT
  Age: 35 Year
  Sex: Female

DRUGS (4)
  1. PREDNISONE. [Concomitant]
     Active Substance: PREDNISONE
     Indication: COLITIS ULCERATIVE
  2. HUMIRA [Suspect]
     Active Substance: ADALIMUMAB
     Indication: COLITIS ULCERATIVE
     Dates: start: 20140429, end: 20140429
  3. HUMIRA [Suspect]
     Active Substance: ADALIMUMAB
     Dates: start: 20140513, end: 20140513
  4. HUMIRA [Suspect]
     Active Substance: ADALIMUMAB
     Dates: start: 20140530

REACTIONS (5)
  - Injection site haemorrhage [Recovered/Resolved]
  - Injection site swelling [Recovered/Resolved]
  - Device issue [Unknown]
  - Incorrect dose administered [Unknown]
  - Injection site bruising [Not Recovered/Not Resolved]

NARRATIVE: CASE EVENT DATE: 2014
